FAERS Safety Report 4684406-1 (Version None)
Quarter: 2005Q2

REPORT INFORMATION
  Report Type: 
  Country: None (occurrence: None)
  Receive Date: 20050531
  Receipt Date: 20041025
  Transmission Date: 20051028
  Serious: Yes (Other)
  Sender: FDA-Public Use
  Company Number: USA041082191

PATIENT
  Sex: Male

DRUGS (1)
  1. ZYPREXA [Suspect]
     Indication: SCHIZOPHRENIA
     Dates: start: 19980101

REACTIONS (8)
  - CONSTIPATION [None]
  - HYPERHIDROSIS [None]
  - KIDNEY INFECTION [None]
  - MIGRAINE [None]
  - PANCREATIC DISORDER [None]
  - RASH GENERALISED [None]
  - SUICIDE ATTEMPT [None]
  - WEIGHT INCREASED [None]
